FAERS Safety Report 11162718 (Version 1)
Quarter: 2015Q2

REPORT INFORMATION
  Report Type: Spontaneous
  Country: US (occurrence: US)
  Receive Date: 20150604
  Receipt Date: 20150604
  Transmission Date: 20150821
  Serious: No
  Sender: FDA-Public Use
  Company Number: US-SA-2015SA007728

PATIENT
  Age: 86 Year
  Sex: Female

DRUGS (2)
  1. LANTUS SOLOSTAR [Suspect]
     Active Substance: INSULIN GLARGINE
     Indication: TYPE 1 DIABETES MELLITUS
     Dosage: DOSE:17 UNIT(S)
     Route: 058
     Dates: start: 1995
  2. SOLOSTAR [Concomitant]
     Active Substance: DEVICE
     Dates: start: 1995

REACTIONS (2)
  - Drug dose omission [Unknown]
  - Memory impairment [Unknown]
